FAERS Safety Report 12409641 (Version 6)
Quarter: 2023Q1

REPORT INFORMATION
  Report Type: Report from Study
  Country: CO (occurrence: CO)
  Receive Date: 20160526
  Receipt Date: 20230308
  Transmission Date: 20230418
  Serious: Yes (Hospitalization)
  Sender: FDA-Public Use
  Company Number: CO-002147023-PHHY2016CO070897

PATIENT

DRUGS (7)
  1. RUXOLITINIB [Suspect]
     Active Substance: RUXOLITINIB
     Indication: Primary myelofibrosis
     Dosage: 5 MG (FIVE DAILY)
     Route: 048
     Dates: start: 20140509
  2. RUXOLITINIB [Suspect]
     Active Substance: RUXOLITINIB
     Dosage: 5 MG, BID (IN THE MORNING AND AT NIGHT)
     Route: 048
  3. RUXOLITINIB [Suspect]
     Active Substance: RUXOLITINIB
     Dosage: 20 MG, QD
     Route: 048
  4. RUXOLITINIB [Suspect]
     Active Substance: RUXOLITINIB
     Dosage: 10 MG, Q12H
     Route: 048
  5. RUXOLITINIB [Suspect]
     Active Substance: RUXOLITINIB
     Dosage: 15 MG, BID
     Route: 048
  6. RUXOLITINIB [Suspect]
     Active Substance: RUXOLITINIB
     Dosage: UNK, Q12H (BY MOUTH)
     Route: 048
  7. RUXOLITINIB [Suspect]
     Active Substance: RUXOLITINIB
     Dosage: UNK (EVERY 15 HOURS)
     Route: 048

REACTIONS (10)
  - Anaemia [Unknown]
  - Inflammation [Unknown]
  - Haemoglobin increased [Unknown]
  - Off label use [Unknown]
  - Product dose omission issue [Unknown]
  - Malaise [Unknown]
  - Splenomegaly [Unknown]
  - Blood uric acid increased [Unknown]
  - Somnolence [Unknown]
  - Asthenia [Unknown]
